FAERS Safety Report 13042946 (Version 6)
Quarter: 2017Q1

REPORT INFORMATION
  Report Type: Report from Study
  Country: US (occurrence: US)
  Receive Date: 20161219
  Receipt Date: 20170306
  Transmission Date: 20170428
  Serious: No
  Sender: FDA-Public Use
  Company Number: US-JAZZ-2016-US-022058

PATIENT
  Age: 22 Year
  Sex: Female
  Weight: 49.89 kg

DRUGS (6)
  1. ADDERALL [Concomitant]
     Active Substance: AMPHETAMINE ASPARTATE\AMPHETAMINE SULFATE\DEXTROAMPHETAMINE SACCHARATE\DEXTROAMPHETAMINE SULFATE
     Indication: NARCOLEPSY
  2. MICROGESTIN FE 1.5 [Concomitant]
  3. XYREM [Suspect]
     Active Substance: SODIUM OXYBATE
     Indication: CATAPLEXY
     Dosage: 4.5 G, BID
     Route: 048
  4. XYREM [Suspect]
     Active Substance: SODIUM OXYBATE
     Indication: NARCOLEPSY
     Dosage: 2.25 G, BID
     Route: 048
     Dates: start: 201611
  5. XYREM [Suspect]
     Active Substance: SODIUM OXYBATE
     Dosage: 3.75 G, BID
     Route: 048
  6. MODAFINIL. [Concomitant]
     Active Substance: MODAFINIL
     Indication: NARCOLEPSY

REACTIONS (10)
  - Hypoaesthesia [Unknown]
  - Unevaluable event [Unknown]
  - Retching [Unknown]
  - Somnolence [Unknown]
  - Vomiting [Recovered/Resolved]
  - Hyperaesthesia [Not Recovered/Not Resolved]
  - Weight decreased [Recovering/Resolving]
  - Pain in extremity [Unknown]
  - Nausea [Recovered/Resolved]
  - Dizziness [Not Recovered/Not Resolved]

NARRATIVE: CASE EVENT DATE: 201611
